FAERS Safety Report 22377960 (Version 1)
Quarter: 2023Q2

REPORT INFORMATION
  Report Type: Spontaneous
  Country: NL (occurrence: NL)
  Receive Date: 20230529
  Receipt Date: 20230529
  Transmission Date: 20230721
  Serious: Yes (Life-Threatening)
  Sender: FDA-Public Use
  Company Number: None

PATIENT
  Sex: Male
  Weight: 105 kg

DRUGS (1)
  1. TRAMADOL [Suspect]
     Active Substance: TRAMADOL
     Indication: Back pain
     Dosage: IF NECESSARY IN CASE OF PAIN   , BRAND NAME NOT SPECIFIED
     Dates: start: 20230424, end: 20230425

REACTIONS (1)
  - Hypoglycaemia [Recovered/Resolved]
